FAERS Safety Report 23574042 (Version 1)
Quarter: 2024Q1

REPORT INFORMATION
  Report Type: Report from Study
  Country: CA (occurrence: CA)
  Receive Date: 20240228
  Receipt Date: 20240228
  Transmission Date: 20240410
  Serious: Yes (Other)
  Sender: FDA-Public Use
  Company Number: CA-002147023-PHHY2019CA089364

PATIENT
  Age: 47 Year
  Sex: Male

DRUGS (9)
  1. ILARIS [Suspect]
     Active Substance: CANAKINUMAB
     Indication: Cryopyrin associated periodic syndrome
     Dosage: 150 MG, EVERY 8 WEEKS (VIALS)
     Route: 058
     Dates: start: 20180727
  2. ILARIS [Suspect]
     Active Substance: CANAKINUMAB
     Dosage: 150 MG (6 WEEKS, VIALS)
     Route: 058
     Dates: start: 20180727
  3. ALDACTAZIDE [Concomitant]
     Active Substance: HYDROCHLOROTHIAZIDE\SPIRONOLACTONE
     Indication: Hypertension
     Dosage: UNK UNK, QD
     Route: 065
  4. INVOKANA [Concomitant]
     Active Substance: CANAGLIFLOZIN
     Indication: Diabetes mellitus
     Dosage: UNK, QD
     Route: 065
  5. METFORMIN [Concomitant]
     Active Substance: METFORMIN HYDROCHLORIDE
     Indication: Diabetes mellitus
     Dosage: UNK UNK, BID
     Route: 065
  6. LASIX [Concomitant]
     Active Substance: FUROSEMIDE
     Indication: Muckle-Wells syndrome
     Dosage: UNK UNK, QD
     Route: 065
  7. NAPROXEN [Concomitant]
     Active Substance: NAPROXEN
     Indication: Product used for unknown indication
     Dosage: UNK
     Route: 065
  8. TYLENOL [Concomitant]
     Active Substance: ACETAMINOPHEN
     Indication: Product used for unknown indication
     Dosage: UNK
     Route: 065
  9. REACTINE [Concomitant]
     Indication: Product used for unknown indication
     Dosage: UNK
     Route: 065

REACTIONS (20)
  - Cryopyrin associated periodic syndrome [Unknown]
  - Condition aggravated [Unknown]
  - Pyrexia [Recovered/Resolved]
  - Nausea [Unknown]
  - Joint swelling [Unknown]
  - Skin disorder [Not Recovered/Not Resolved]
  - Conjunctivitis [Unknown]
  - Fatigue [Unknown]
  - Malaise [Unknown]
  - Arthralgia [Recovering/Resolving]
  - Myalgia [Recovering/Resolving]
  - Urticaria [Recovering/Resolving]
  - Swelling [Unknown]
  - Migraine [Unknown]
  - Skin irritation [Unknown]
  - Seizure [Recovered/Resolved]
  - Weight increased [Unknown]
  - Pruritus [Unknown]
  - Pyrexia [Unknown]
  - Urticaria [Unknown]
